FAERS Safety Report 10177799 (Version 1)
Quarter: 2014Q2

REPORT INFORMATION
  Report Type: Spontaneous
  Country: US (occurrence: US)
  Receive Date: 20140516
  Receipt Date: 20140516
  Transmission Date: 20141212
  Serious: No
  Sender: FDA-Public Use
  Company Number: US-SANOFI-AVENTIS-2013SA094765

PATIENT
  Sex: Male

DRUGS (4)
  1. SOLOSTAR [Suspect]
  2. APIDRA SOLOSTAR [Suspect]
     Route: 058
  3. SOLOSTAR [Suspect]
  4. LANTUS SOLOSTAR [Suspect]
     Dosage: DOSE:14 UNIT(S)
     Route: 058

REACTIONS (1)
  - Wrong drug administered [Unknown]
